FAERS Safety Report 12991146 (Version 2)
Quarter: 2016Q4

REPORT INFORMATION
  Report Type: Spontaneous
  Country: US (occurrence: US)
  Receive Date: 20161201
  Receipt Date: 20161212
  Transmission Date: 20170207
  Serious: Yes (Hospitalization)
  Sender: FDA-Public Use
  Company Number: US-VERTEX PHARMACEUTICALS-2016-006637

PATIENT
  Age: 32 Year
  Sex: Male

DRUGS (14)
  1. AZITHROMYCIN ANHYDROUS. [Concomitant]
     Active Substance: AZITHROMYCIN ANHYDROUS
     Dosage: 1 DF, TID
     Route: 048
     Dates: start: 20120216
  2. PULMOZYME [Concomitant]
     Active Substance: DORNASE ALFA
     Dosage: 1 VIAL IN NEBULIZER, BID
     Route: 055
     Dates: start: 20100104
  3. ORKAMBI [Suspect]
     Active Substance: IVACAFTOR\LUMACAFTOR
     Indication: CYSTIC FIBROSIS
     Dosage: 2 DF (400-250 MG), BID
     Route: 048
     Dates: start: 20160119
  4. ALBUTEROL SULFATE. [Concomitant]
     Active Substance: ALBUTEROL SULFATE
     Dosage: 1 VIAL IN NEBULIZER, BID
     Route: 055
     Dates: start: 20100218
  5. HYPERSAL [Concomitant]
     Dosage: INHALE 1 VIAL VIA NEBULIZER, BID AS DIRECTED
     Route: 055
     Dates: start: 20120521
  6. PROAIR HFA [Concomitant]
     Active Substance: ALBUTEROL SULFATE
     Dosage: INHALE 2 PUFFS, EVERY 4 HRS, PRN
     Route: 055
     Dates: start: 20160429
  7. CAYSTON [Concomitant]
     Active Substance: AZTREONAM
     Dosage: INHALE 1 VIAL TID FOR 28DAYS EVERY OTHER MONTH
     Route: 055
  8. MSM [Concomitant]
     Active Substance: DIMETHYL SULFONE
     Dosage: 1 DF, QD
     Route: 048
  9. MULTIVITAMINS [Concomitant]
     Active Substance: VITAMINS
     Dosage: 1 DF, QD
     Route: 048
  10. SODIUM CHLORIDE. [Concomitant]
     Active Substance: SODIUM CHLORIDE
     Dosage: 1 VIAL BY NEBULIZER, BID
     Route: 055
     Dates: start: 20160125
  11. CREON [Concomitant]
     Active Substance: PANCRELIPASE AMYLASE\PANCRELIPASE LIPASE\PANCRELIPASE PROTEASE
     Dosage: 6 CAPS WITH MEALS AND 4 CAPS WITH SNACKS
     Route: 048
     Dates: start: 20100621
  12. GLUCOSAMINE CHONDROITIN COMPLEX [Concomitant]
     Active Substance: CHONDROITIN SULFATE (BOVINE)\GLUCOSAMINE HYDROCHLORIDE
     Dosage: 1 DF, QD
  13. PREDNISONE. [Concomitant]
     Active Substance: PREDNISONE
     Dosage: 1 DF, QD
     Route: 048
     Dates: start: 20161128
  14. TOBI [Concomitant]
     Active Substance: TOBRAMYCIN
     Dosage: 1 VIAL IN NEBULIZER, BID FOR 28 DAYS EVERY OTHER MONTH
     Route: 055
     Dates: start: 20140701

REACTIONS (1)
  - Infective pulmonary exacerbation of cystic fibrosis [Recovered/Resolved]

NARRATIVE: CASE EVENT DATE: 20161114
